FAERS Safety Report 9329789 (Version 1)
Quarter: 2013Q2

REPORT INFORMATION
  Report Type: Spontaneous
  Country: US (occurrence: US)
  Receive Date: 20130604
  Receipt Date: 20130604
  Transmission Date: 20140414
  Serious: Yes (Other)
  Sender: FDA-Public Use
  Company Number: US-SANOFI-AVENTIS-2013SA037222

PATIENT
  Age: 44 Year
  Sex: Female
  Weight: 81.19 kg

DRUGS (5)
  1. LANTUS [Suspect]
     Indication: DIABETES MELLITUS
     Dosage: TAKEN FROM:10-12 YEARS AGO?DOSE - 35 UNITA EVERY MORNING DOSE:35 UNIT(S)
     Route: 051
  2. HUMALOG [Suspect]
     Dosage: 1 UNIT FOR EVERY 30 GRAMS OF CARBS
  3. METFORMIN [Concomitant]
     Indication: DIABETES MELLITUS
     Dosage: THERAPY START DATE - LAST FEW YEARS
  4. LISINOPRIL [Concomitant]
     Indication: HYPERTENSION
     Dosage: DOSE - 1 TIME - 10-12.5 MG
  5. PRAVASTATIN [Concomitant]
     Indication: PROPHYLAXIS
     Dates: start: 2010

REACTIONS (6)
  - Hyperglycaemia [Recovered/Resolved]
  - Stress [Unknown]
  - Malaise [Unknown]
  - Dyspnoea [Unknown]
  - Drug dose omission [Unknown]
  - Blood glucose abnormal [Unknown]
